FAERS Safety Report 4627615-X (Version None)
Quarter: 2005Q2

REPORT INFORMATION
  Report Type: 
  Country: None (occurrence: None)
  Receive Date: 20050401
  Receipt Date: 20050401
  Transmission Date: 20051028
  Serious: Yes (Hospitalization)
  Sender: FDA-Public Use
  Company Number: None

PATIENT
  Sex: Male
  Weight: 93.441 kg

DRUGS (4)
  1. KETEK [Suspect]
     Indication: BRONCHITIS ACUTE
     Dosage: 800MG DAILY ORAL
     Route: 048
     Dates: start: 20050318, end: 20050318
  2. CARDIZEM CD [Concomitant]
  3. LIPITOR [Concomitant]
  4. ADVIL [Concomitant]

REACTIONS (4)
  - LEUKOCYTOCLASTIC VASCULITIS [None]
  - RASH ERYTHEMATOUS [None]
  - SKIN EXFOLIATION [None]
  - SWELLING FACE [None]
